FAERS Safety Report 4999411-5 (Version None)
Quarter: 2006Q2

REPORT INFORMATION
  Report Type: 
  Country: None (occurrence: None)
  Receive Date: 20060511
  Receipt Date: 20060306
  Transmission Date: 20061013
  Serious: Yes (Other)
  Sender: FDA-Public Use
  Company Number: NL-ROCHE-439237

PATIENT
  Age: 58 Year
  Sex: Female

DRUGS (3)
  1. CAPECITABINE [Suspect]
     Dosage: DAYS 1-14, AS PER PROTOCOL REPORTED DOSE = 2 X 1800MG DAILY
     Route: 048
     Dates: start: 20060126
  2. AVASTIN [Suspect]
     Dosage: DAY 1, AS PER PROTOCOL REPORTED DOSE = 500MG
     Route: 042
     Dates: start: 20060126
  3. OXALIPLATIN [Suspect]
     Dosage: DAY 1, AS PER PROTOCOL REPORTED DOSE = 240MG
     Route: 042
     Dates: start: 20060126

REACTIONS (1)
  - TRANSIENT ISCHAEMIC ATTACK [None]
